FAERS Safety Report 4504219-0 (Version None)
Quarter: 2004Q4

REPORT INFORMATION
  Report Type: 
  Country: None (occurrence: None)
  Receive Date: 20041116
  Receipt Date: 20041116
  Transmission Date: 20050328
  Serious: Yes (Hospitalization)
  Sender: FDA-Public Use
  Company Number: None

PATIENT
  Age: 84 Year
  Sex: Male
  Weight: 54.4316 kg

DRUGS (15)
  1. IBUPROFEN [Suspect]
     Indication: PAIN
     Dosage: 400 MG Q8H PRN
     Dates: start: 20040629
  2. DOXYCYCLINE HYCLATE [Concomitant]
  3. BICALUTAMIDE [Concomitant]
  4. FLUOXETINE HCL [Concomitant]
  5. PROSHIELD PLUS SKIN PROTECTANT TOP GEL [Concomitant]
  6. PREDNISONE [Concomitant]
  7. IBUPROFEN [Concomitant]
  8. NUTRITION SUPL ENSURE/VANILLA PWD [Concomitant]
  9. GAUZE PAD 4IN X 4IN STERILE [Concomitant]
  10. KERLIX [Concomitant]
  11. INCONTINENCE BRIEF [Concomitant]
  12. BAG, URINARY [Concomitant]
  13. URINARY DRAINAGE KIT MONO-FLO [Concomitant]
  14. BAG, LEG LARGE [Concomitant]
  15. CATHETER, EXTERNAL [Concomitant]

REACTIONS (3)
  - ASTHENIA [None]
  - DEHYDRATION [None]
  - RENAL FAILURE ACUTE [None]
